FAERS Safety Report 7930678-7 (Version None)
Quarter: 2011Q4

REPORT INFORMATION
  Report Type: 
  Country: None (occurrence: None)
  Receive Date: 20111117
  Receipt Date: 20111103
  Transmission Date: 20120403
  Serious: Yes (Death, Other)
  Sender: FDA-Public Use
  Company Number: 1103769

PATIENT
  Age: 51 Year
  Sex: Male

DRUGS (18)
  1. (ALEMTUZUMAB) [Suspect]
     Indication: T-CELL LYMPHOMA
     Dosage: 30 MG, SUBCUTANEOUS
     Route: 058
  2. MESNA [Concomitant]
  3. LEUCOVORIN CALCIUM [Concomitant]
  4. ACYCLOVIR [Concomitant]
  5. CYCLOPHOSPHAMIDE [Suspect]
     Indication: T-CELL LYMPHOMA
     Dosage: 300 MG/M^2, INTRAVENOUS (NOT OTHERWISE SPECIFIED)
     Route: 042
  6. CYTARABINE [Suspect]
     Indication: T-CELL LYMPHOMA
     Dosage: 3 G/M^2 TWICE A DAY, INTRAVENOUS (NOT OTHERWISE SPECIFIED)
     Route: 042
  7. METHOTREXATE [Suspect]
     Indication: T-CELL LYMPHOMA
     Dosage: 12 MG, INTRATHECAL
     Route: 039
  8. CYTARABINE [Suspect]
     Indication: T-CELL LYMPHOMA
     Dosage: 100 MG, INTRATHECAL
     Route: 039
  9. FILGRASTIM [Concomitant]
  10. VINCRISTINE SULFATE [Suspect]
     Indication: T-CELL LYMPHOMA
     Dosage: 1.4 MG/M^2, INTRAVENOUS BOLUS
     Route: 040
  11. DEXAMETHASONE [Suspect]
     Indication: T-CELL LYMPHOMA
     Dosage: 40 MG/DAY, INTRAVENOUS (NOT OTHERWISE SPECIFIED)
     Route: 042
  12. DIPHENHYDRAMINE HCL [Concomitant]
  13. SULFAMETHOXAZOLE AND TRIMETHOPRIM [Concomitant]
  14. METHOTREXATE [Suspect]
     Indication: T-CELL LYMPHOMA
     Dosage: 200 MG/M^2, INTRAVENOUS (NOT OTHERWISE SPECIFIED); 800 MG/M^2, INTRAVENOUS (NOT OTHERWISE SPECIFIED)
     Route: 042
  15. DOXORUBICIN HCL [Suspect]
     Indication: T-CELL LYMPHOMA
     Dosage: 50 MG/M^2,
  16. ACETAMINOPHEN [Concomitant]
  17. FLUCONAZOLE [Concomitant]
  18. GANCICLOVIR [Concomitant]

REACTIONS (3)
  - CYTOMEGALOVIRUS INFECTION [None]
  - NEUTROPENIC SEPSIS [None]
  - NEUTROPENIA [None]
